FAERS Safety Report 19399127 (Version 1)
Quarter: 2021Q2

REPORT INFORMATION
  Report Type: Spontaneous
  Country: US (occurrence: US)
  Receive Date: 20210610
  Receipt Date: 20210610
  Transmission Date: 20210717
  Serious: Yes (Death, Hospitalization, Other)
  Sender: FDA-Public Use
  Company Number: US-BAYER-2021-152493

PATIENT
  Age: 68 Year
  Sex: Female

DRUGS (4)
  1. ACETYLSALICYLIC ACID [Suspect]
     Active Substance: ASPIRIN
     Dosage: UNK
  2. ZOLPIDEM [Suspect]
     Active Substance: ZOLPIDEM TARTRATE
  3. DULOXETINE. [Suspect]
     Active Substance: DULOXETINE
  4. PARACETAMOL [Suspect]
     Active Substance: ACETAMINOPHEN

REACTIONS (6)
  - Encephalopathy [Fatal]
  - Respiratory failure [None]
  - Suicide attempt [None]
  - Overdose [None]
  - Hepatic failure [None]
  - Acute kidney injury [None]
